FAERS Safety Report 7289232-5 (Version None)
Quarter: 2011Q1

REPORT INFORMATION
  Report Type: 
  Country: None (occurrence: None)
  Receive Date: 20110211
  Receipt Date: 20110210
  Transmission Date: 20110831
  Serious: Yes (Hospitalization)
  Sender: FDA-Public Use
  Company Number: IT-ABBOTT-11P-083-0698934-00

PATIENT
  Sex: Female
  Weight: 73 kg

DRUGS (2)
  1. DELTACORTENE [Concomitant]
     Indication: PRODUCT USED FOR UNKNOWN INDICATION
     Dates: start: 20090601
  2. HUMIRA [Suspect]
     Indication: RHEUMATOID ARTHRITIS
     Dosage: TOTAL
     Route: 058
     Dates: start: 20101201, end: 20101201

REACTIONS (2)
  - LARYNGEAL OEDEMA [None]
  - PRURITUS [None]
